FAERS Safety Report 10133511 (Version 2)
Quarter: 2014Q2

REPORT INFORMATION
  Report Type: Spontaneous
  Country: FR (occurrence: FR)
  Receive Date: 20140428
  Receipt Date: 20140507
  Transmission Date: 20141212
  Serious: Yes (Hospitalization)
  Sender: FDA-Public Use
  Company Number: PHHY2014FR050472

PATIENT
  Age: 54 Year
  Sex: Female

DRUGS (3)
  1. TEGRETOL [Suspect]
     Dosage: 200 MG, QD
     Route: 048
     Dates: start: 2012, end: 20140331
  2. TEGRETOL [Suspect]
     Dosage: 400 MG, QD
     Route: 048
     Dates: start: 2012, end: 20140331
  3. LEVOTHYROX [Concomitant]
     Dosage: 50 UG, QD
     Route: 048

REACTIONS (2)
  - Convulsion [Recovered/Resolved]
  - Inappropriate antidiuretic hormone secretion [Recovered/Resolved]
